FAERS Safety Report 10220597 (Version 1)
Quarter: 2014Q2

REPORT INFORMATION
  Report Type: Spontaneous
  Country: US (occurrence: US)
  Receive Date: 20140606
  Receipt Date: 20140606
  Transmission Date: 20141212
  Serious: No
  Sender: FDA-Public Use
  Company Number: US-009507513-1406USA000340

PATIENT
  Sex: Male

DRUGS (3)
  1. JANUVIA [Suspect]
     Indication: DIABETES MELLITUS
     Dosage: 100 MG, QD
     Route: 048
     Dates: start: 2013, end: 20140530
  2. LISINOPRIL [Interacting]
     Route: 048
  3. TRAMADOL HYDROCHLORIDE [Concomitant]

REACTIONS (5)
  - Blood glucose increased [Unknown]
  - Cough [Unknown]
  - Upper respiratory tract irritation [Unknown]
  - Hypersensitivity [Unknown]
  - Drug interaction [Unknown]
